FAERS Safety Report 23349750 (Version 4)
Quarter: 2025Q1

REPORT INFORMATION
  Report Type: Spontaneous
  Country: US (occurrence: US)
  Receive Date: 20231229
  Receipt Date: 20250303
  Transmission Date: 20250408
  Serious: Yes (Hospitalization)
  Sender: SANOFI AVENTIS
  Company Number: US-SA-2023SA397059

PATIENT
  Age: 59 Year
  Sex: Female
  Weight: 109.09 kg

DRUGS (1)
  1. NEXVIAZYME [Suspect]
     Active Substance: AVALGLUCOSIDASE ALFA-NGPT
     Indication: Glycogen storage disease type II
     Dosage: 2200 MG, QOW
     Route: 042
     Dates: start: 202202

REACTIONS (3)
  - Vertigo [Unknown]
  - COVID-19 [Recovering/Resolving]
  - Weight decreased [Recovering/Resolving]
